FAERS Safety Report 4592283-2 (Version None)
Quarter: 2005Q1

REPORT INFORMATION
  Report Type: 
  Country: None (occurrence: None)
  Receive Date: 20050228
  Receipt Date: 20041116
  Transmission Date: 20050727
  Serious: No
  Sender: FDA-Public Use
  Company Number: US-BRISTOL-MYERS SQUIBB COMPANY-12767265

PATIENT
  Sex: Male

DRUGS (1)
  1. ABILIFY [Suspect]
     Indication: SCHIZOAFFECTIVE DISORDER
     Dosage: STARTED ON 2.5 MG/DAY, TITRATED TO 5 MG/DAY
     Route: 048

REACTIONS (3)
  - AKATHISIA [None]
  - FEELING JITTERY [None]
  - OBSESSIVE-COMPULSIVE DISORDER [None]
